FAERS Safety Report 5067784-3 (Version None)
Quarter: 2006Q3

REPORT INFORMATION
  Report Type: 
  Country: None (occurrence: None)
  Receive Date: 20060802
  Receipt Date: 20060731
  Transmission Date: 20061208
  Serious: Yes (Hospitalization)
  Sender: FDA-Public Use
  Company Number: 200607001324

PATIENT
  Age: 73 Year
  Sex: Male

DRUGS (1)
  1. COMPAZINE [Suspect]

REACTIONS (1)
  - EXTRAPYRAMIDAL DISORDER [None]
